FAERS Safety Report 23142921 (Version 3)
Quarter: 2023Q4

REPORT INFORMATION
  Report Type: Report from Study
  Country: CA (occurrence: None)
  Receive Date: 20231103
  Receipt Date: 20231201
  Transmission Date: 20240109
  Serious: Yes (Death, Hospitalization)
  Sender: FDA-Public Use
  Company Number: 2023A249999

PATIENT
  Age: 79 Year
  Sex: Female

DRUGS (3)
  1. IMFINZI [Suspect]
     Active Substance: DURVALUMAB
     Indication: Bile duct cancer
     Route: 042
     Dates: start: 20230125, end: 2023
  2. LUPITOR [Concomitant]
  3. MELOXICAM [Concomitant]
     Active Substance: MELOXICAM

REACTIONS (2)
  - Hyponatraemia [Fatal]
  - Physical deconditioning [Fatal]

NARRATIVE: CASE EVENT DATE: 20230101
